FAERS Safety Report 21324931 (Version 1)
Quarter: 2022Q3

REPORT INFORMATION
  Report Type: Spontaneous
  Country: US (occurrence: US)
  Receive Date: 20220912
  Receipt Date: 20220912
  Transmission Date: 20221027
  Serious: No
  Sender: FDA-Public Use
  Company Number: US-TEVA-2022-US-2069025

PATIENT
  Age: 55 Year
  Sex: Female

DRUGS (1)
  1. TAMOXIFEN CITRATE [Suspect]
     Active Substance: TAMOXIFEN CITRATE
     Indication: Breast cancer
     Route: 065
     Dates: start: 2019

REACTIONS (6)
  - Chest discomfort [Unknown]
  - Illness [Unknown]
  - Dizziness [Unknown]
  - Headache [Unknown]
  - Drug ineffective [Unknown]
  - Adverse event [Unknown]

NARRATIVE: CASE EVENT DATE: 20220801
